FAERS Safety Report 9972739 (Version 2)
Quarter: 2014Q2

REPORT INFORMATION
  Report Type: Spontaneous
  Country: US (occurrence: US)
  Receive Date: 20140306
  Receipt Date: 20140516
  Transmission Date: 20141212
  Serious: No
  Sender: FDA-Public Use
  Company Number: US-PFIZER INC-2014057485

PATIENT
  Age: 63 Year
  Sex: Male
  Weight: 90.25 kg

DRUGS (16)
  1. TIKOSYN [Suspect]
     Indication: ATRIAL FIBRILLATION
     Dosage: 125 UG, 2X/DAY (1 TABLET TWICE DAILY)
     Dates: start: 201312, end: 20140217
  2. EPLERENONE [Concomitant]
     Dosage: 25 MG, DAILY
     Route: 048
  3. ALPRAZOLAM [Concomitant]
     Dosage: (0.25 MG, 1-2 BY MOUTH AS NEEDED, THREE TIMES DAILY)
     Route: 048
  4. POTASSIUM CHLORIDE [Concomitant]
     Dosage: 10 MEQ, DAILY
     Route: 048
  5. ATORVASTATIN CALCIUM [Concomitant]
     Dosage: 40 MG, DAILY
     Route: 048
  6. WARFARIN SODIUM [Concomitant]
     Dosage: 5 MG, 1X/DAY
     Route: 048
  7. WARFARIN SODIUM [Concomitant]
     Dosage: 1 MG, 1X/DAY
  8. LEVEMIR FLEXPEN [Concomitant]
     Dosage: 100 UNIT/ML 38 UNITS DAILY
  9. FINASTERIDE [Concomitant]
     Dosage: 5 MG, DAILY
     Route: 048
  10. NOVOLOG MIX 70/30 [Concomitant]
     Dosage: 10 DF, (70-30 % 10 UNITS AFTER EACH MEAL)
  11. TAMSULOSIN HYDROCHLORIDE [Concomitant]
     Dosage: 0.4 MG, DAILY
     Route: 048
  12. CALCITRIOL [Concomitant]
     Dosage: 0.25 UG, WEEKLY
     Route: 048
  13. VITAMIN D [Concomitant]
     Dosage: 1 DF, DAILY (2000 UNIT 1 TABLET BY MOUTH DAILY)
     Route: 048
  14. METOPROLOL TARTRATE [Concomitant]
     Dosage: 50 MG, 2X/DAY
     Route: 048
  15. LISINOPRIL [Concomitant]
     Dosage: 2.5 MG, DAILY
     Route: 048
  16. FUROSEMIDE [Concomitant]
     Dosage: 80 MG, 2X/DAY
     Route: 048

REACTIONS (1)
  - Dyspnoea [Recovered/Resolved]
